FAERS Safety Report 9596648 (Version 1)
Quarter: 2013Q4

REPORT INFORMATION
  Report Type: Spontaneous
  Country: FR (occurrence: FR)
  Receive Date: 20131004
  Receipt Date: 20131004
  Transmission Date: 20140711
  Serious: Yes (Hospitalization, Other)
  Sender: FDA-Public Use
  Company Number: FR-ASTRAZENECA-2013SE72593

PATIENT
  Age: 32667 Day
  Sex: Male

DRUGS (17)
  1. INEXIUM [Suspect]
     Route: 048
     Dates: end: 20130719
  2. ZYLORIC [Suspect]
     Indication: GOUT
     Route: 048
     Dates: end: 20130712
  3. AMIKACINE MYLAN [Suspect]
     Indication: URINARY TRACT INFECTION
     Route: 042
     Dates: start: 20130707, end: 20130708
  4. CEFTRIAXONE PANPHARMA [Suspect]
     Indication: URINARY TRACT INFECTION
     Route: 042
     Dates: start: 20130707, end: 20130708
  5. TIENAM [Suspect]
     Indication: ESCHERICHIA INFECTION
     Route: 042
     Dates: start: 20130713, end: 20130719
  6. FRAGMINE [Suspect]
     Indication: THROMBOSIS PROPHYLAXIS
     Route: 058
     Dates: start: 20130713, end: 20130713
  7. HEMIGOXINE NATIVELLE [Suspect]
     Indication: ATRIAL FIBRILLATION
     Route: 048
     Dates: end: 20130712
  8. CHIBRO-PROSCAR [Suspect]
     Indication: BENIGN PROSTATIC HYPERPLASIA
     Route: 048
     Dates: end: 20130712
  9. TRIFLUCAN [Suspect]
     Route: 048
     Dates: start: 20130712, end: 20130717
  10. PREVISCAN [Suspect]
     Route: 048
     Dates: end: 20130707
  11. LASILIX FAIBLE [Suspect]
     Route: 048
     Dates: end: 20130712
  12. KANOKAD [Suspect]
     Dosage: 25 IU/ML
     Route: 042
     Dates: start: 20130707, end: 20130707
  13. LEVOTHYROX [Concomitant]
     Route: 048
  14. PERFALGAN [Concomitant]
     Route: 042
     Dates: start: 20130712, end: 20130716
  15. INVANZ [Concomitant]
     Indication: URINARY TRACT INFECTION
     Route: 042
     Dates: start: 20130709, end: 20130712
  16. INVANZ [Concomitant]
     Indication: URINARY TRACT INFECTION
     Route: 012
     Dates: start: 20130719
  17. CORDARONE [Concomitant]
     Route: 048

REACTIONS (5)
  - Anaemia [Unknown]
  - Leukopenia [Recovered/Resolved]
  - Fall [Unknown]
  - Head injury [Unknown]
  - Subdural haematoma [Unknown]
